FAERS Safety Report 25277858 (Version 1)
Quarter: 2025Q2

REPORT INFORMATION
  Report Type: Spontaneous
  Country: US (occurrence: US)
  Receive Date: 20250507
  Receipt Date: 20250507
  Transmission Date: 20250716
  Serious: Yes (Hospitalization)
  Sender: MYLAN
  Company Number: US-MYLANLABS-2025M1038335

PATIENT
  Age: 5 Decade
  Sex: Female

DRUGS (28)
  1. ACETAMINOPHEN [Suspect]
     Active Substance: ACETAMINOPHEN
     Indication: Pain
  2. ACETAMINOPHEN [Suspect]
     Active Substance: ACETAMINOPHEN
     Route: 065
  3. ACETAMINOPHEN [Suspect]
     Active Substance: ACETAMINOPHEN
     Route: 065
  4. ACETAMINOPHEN [Suspect]
     Active Substance: ACETAMINOPHEN
  5. METHADONE [Suspect]
     Active Substance: METHADONE HYDROCHLORIDE
     Indication: Pain
     Dosage: 10 MILLIGRAM, BID
  6. METHADONE [Suspect]
     Active Substance: METHADONE HYDROCHLORIDE
     Dosage: 10 MILLIGRAM, BID
     Route: 065
  7. METHADONE [Suspect]
     Active Substance: METHADONE HYDROCHLORIDE
     Dosage: 10 MILLIGRAM, BID
     Route: 065
  8. METHADONE [Suspect]
     Active Substance: METHADONE HYDROCHLORIDE
     Dosage: 10 MILLIGRAM, BID
  9. TRAMADOL [Suspect]
     Active Substance: TRAMADOL
     Indication: Pain
  10. TRAMADOL [Suspect]
     Active Substance: TRAMADOL
     Route: 065
  11. TRAMADOL [Suspect]
     Active Substance: TRAMADOL
     Route: 065
  12. TRAMADOL [Suspect]
     Active Substance: TRAMADOL
  13. CODEINE [Suspect]
     Active Substance: CODEINE
     Indication: Pain
  14. CODEINE [Suspect]
     Active Substance: CODEINE
     Route: 065
  15. CODEINE [Suspect]
     Active Substance: CODEINE
     Route: 065
  16. CODEINE [Suspect]
     Active Substance: CODEINE
  17. MORPHINE [Suspect]
     Active Substance: MORPHINE
     Indication: Pain
  18. MORPHINE [Suspect]
     Active Substance: MORPHINE
     Route: 065
  19. MORPHINE [Suspect]
     Active Substance: MORPHINE
     Route: 065
  20. MORPHINE [Suspect]
     Active Substance: MORPHINE
  21. HYDROMORPHONE [Suspect]
     Active Substance: HYDROMORPHONE
     Indication: Pain
  22. HYDROMORPHONE [Suspect]
     Active Substance: HYDROMORPHONE
     Route: 065
  23. HYDROMORPHONE [Suspect]
     Active Substance: HYDROMORPHONE
     Route: 065
  24. HYDROMORPHONE [Suspect]
     Active Substance: HYDROMORPHONE
  25. OXYCODONE [Suspect]
     Active Substance: OXYCODONE
     Indication: Pain
  26. OXYCODONE [Suspect]
     Active Substance: OXYCODONE
     Route: 065
  27. OXYCODONE [Suspect]
     Active Substance: OXYCODONE
     Route: 065
  28. OXYCODONE [Suspect]
     Active Substance: OXYCODONE

REACTIONS (3)
  - Withdrawal syndrome [Unknown]
  - Treatment failure [Unknown]
  - Treatment noncompliance [Unknown]
